FAERS Safety Report 7569155-4 (Version None)
Quarter: 2011Q2

REPORT INFORMATION
  Report Type: 
  Country: None (occurrence: None)
  Receive Date: 20110623
  Receipt Date: 20110609
  Transmission Date: 20111010
  Serious: Yes (Other)
  Sender: FDA-Public Use
  Company Number: PHHY2011US51593

PATIENT
  Sex: Female

DRUGS (4)
  1. GABAPENTIN [Concomitant]
  2. LORTAB [Suspect]
     Dosage: 7.5/500 MG
  3. RECLAST [Suspect]
     Dosage: UNK
     Route: 042
     Dates: start: 20101101
  4. VALIUM [Concomitant]

REACTIONS (20)
  - ARTHRALGIA [None]
  - ABDOMINAL PAIN UPPER [None]
  - ROAD TRAFFIC ACCIDENT [None]
  - OSTEOPOROSIS [None]
  - PHARYNGEAL ERYTHEMA [None]
  - ASTHENIA [None]
  - BONE PAIN [None]
  - FEELING ABNORMAL [None]
  - LIMB DISCOMFORT [None]
  - RHINORRHOEA [None]
  - BURNING SENSATION [None]
  - PAIN [None]
  - HEADACHE [None]
  - MUSCLE SPASMS [None]
  - DIARRHOEA [None]
  - MOVEMENT DISORDER [None]
  - EAR PAIN [None]
  - APHONIA [None]
  - DEPRESSION [None]
  - CONSTIPATION [None]
